FAERS Safety Report 25229688 (Version 1)
Quarter: 2025Q2

REPORT INFORMATION
  Report Type: Spontaneous
  Country: DE (occurrence: DE)
  Receive Date: 20250423
  Receipt Date: 20250423
  Transmission Date: 20250716
  Serious: Yes (Life-Threatening, Hospitalization)
  Sender: ACCORD
  Company Number: DE-MLMSERVICE-20250404-PI469196-00291-1

PATIENT
  Age: 47 Year
  Sex: Male

DRUGS (3)
  1. EZETIMIBE [Suspect]
     Active Substance: EZETIMIBE
     Indication: Product used for unknown indication
  2. ROSUVASTATIN CALCIUM [Suspect]
     Active Substance: ROSUVASTATIN CALCIUM
     Indication: Product used for unknown indication
  3. SERTRALINE [Suspect]
     Active Substance: SERTRALINE HYDROCHLORIDE
     Indication: Product used for unknown indication

REACTIONS (6)
  - Rhabdomyolysis [Recovering/Resolving]
  - Acute kidney injury [Unknown]
  - Anuria [Unknown]
  - Hyperkalaemia [Recovering/Resolving]
  - Cardiac failure [Recovering/Resolving]
  - Metabolic acidosis [Recovering/Resolving]
